FAERS Safety Report 17923574 (Version 1)
Quarter: 2020Q2

REPORT INFORMATION
  Report Type: Spontaneous
  Country: US (occurrence: US)
  Receive Date: 20200622
  Receipt Date: 20200622
  Transmission Date: 20200714
  Serious: No
  Sender: FDA-Public Use
  Company Number: None

PATIENT
  Age: 56 Year
  Sex: Female
  Weight: 81 kg

DRUGS (6)
  1. PROLIA [Suspect]
     Active Substance: DENOSUMAB
     Indication: OSTEOPENIA
  2. VITAMIN D [Concomitant]
     Active Substance: VITAMIN D NOS
  3. BOSWELLIA [Concomitant]
     Active Substance: DIETARY SUPPLEMENT\HERBALS
  4. CALCIUM [Concomitant]
     Active Substance: CALCIUM
  5. CALCIFOOD [Concomitant]
  6. ALLERPLEX [Concomitant]

REACTIONS (6)
  - Arthralgia [None]
  - Rash [None]
  - Hair texture abnormal [None]
  - Myalgia [None]
  - Pruritus [None]
  - Dry skin [None]

NARRATIVE: CASE EVENT DATE: 20190301
